FAERS Safety Report 4713027-7 (Version None)
Quarter: 2005Q3

REPORT INFORMATION
  Report Type: 
  Country: None (occurrence: None)
  Receive Date: 20050713
  Receipt Date: 20050630
  Transmission Date: 20060218
  Serious: Yes (Hospitalization)
  Sender: FDA-Public Use
  Company Number: US-BRISTOL-MYERS SQUIBB COMPANY-13021860

PATIENT

DRUGS (2)
  1. TRIMOX [Suspect]
     Dosage: ^LAST MARCH AT THE HOURS OF 6:00 PM, 8:00+ PM, 3:00 AM AND 9:00 AM^
     Route: 048
  2. DIPHENHYDRAMINE HCL [Suspect]
     Dosage: ^LAST MARCH AT THE HOURS OF 6:00 PM, 8:00+ PM, 3:00 AM AND 9:00 AM^
     Route: 048

REACTIONS (5)
  - ACCIDENTAL OVERDOSE [None]
  - ECCHYMOSIS [None]
  - EYE SWELLING [None]
  - MEDICATION ERROR [None]
  - VOMITING [None]
